FAERS Safety Report 25649484 (Version 1)
Quarter: 2025Q3

REPORT INFORMATION
  Report Type: Spontaneous
  Country: GB (occurrence: GB)
  Receive Date: 20250806
  Receipt Date: 20250806
  Transmission Date: 20251021
  Serious: Yes (Other)
  Sender: RANBAXY
  Company Number: GB-MHRA-EMIS-7844-e9c8ec21-797f-4b3c-8bf9-bb5852bc1a85

PATIENT
  Age: 45 Year
  Sex: Male
  Weight: 89 kg

DRUGS (1)
  1. ATORVASTATIN [Suspect]
     Active Substance: ATORVASTATIN
     Indication: Product used for unknown indication
     Route: 065
     Dates: start: 20250402

REACTIONS (1)
  - Chest pain [Recovered/Resolved]
